FAERS Safety Report 6894572-5 (Version None)
Quarter: 2010Q3

REPORT INFORMATION
  Report Type: 
  Country: None (occurrence: None)
  Receive Date: 20100802
  Receipt Date: 20100719
  Transmission Date: 20110219
  Serious: Yes (Other)
  Sender: FDA-Public Use
  Company Number: PHHY2010FR38941

PATIENT
  Sex: Male
  Weight: 18 kg

DRUGS (5)
  1. EXJADE [Suspect]
     Indication: SICKLE CELL ANAEMIA
     Dosage: 125 MG, TID
     Route: 048
  2. EXJADE [Suspect]
     Dosage: 125 MG, QD
     Route: 048
  3. EXJADE [Suspect]
     Dosage: 125 MG, TID
     Route: 048
     Dates: start: 20100401
  4. ORACILLINE [Concomitant]
  5. SPECIAFOLDINE [Concomitant]

REACTIONS (7)
  - ABDOMINAL PAIN [None]
  - DIZZINESS [None]
  - HYPERHIDROSIS [None]
  - MALAISE [None]
  - NAUSEA [None]
  - PAIN IN EXTREMITY [None]
  - PALLOR [None]
